FAERS Safety Report 8845494 (Version 2)
Quarter: 2012Q4

REPORT INFORMATION
  Report Type: 
  Country: US (occurrence: US)
  Receive Date: 20121017
  Receipt Date: 20121105
  Transmission Date: 20130627
  Serious: No
  Sender: FDA-Public Use
  Company Number: US-PFIZER INC-2012255059

PATIENT
  Age: 34 Year
  Sex: Female
  Weight: 72.56 kg

DRUGS (1)
  1. AZITHROMYCIN [Suspect]
     Indication: SINUS INFECTION
     Dosage: 250 mg, single
     Dates: start: 20121011, end: 20121012

REACTIONS (2)
  - Malaise [Not Recovered/Not Resolved]
  - Abdominal discomfort [Not Recovered/Not Resolved]
